FAERS Safety Report 8258899-7 (Version None)
Quarter: 2012Q2

REPORT INFORMATION
  Report Type: 
  Country: None (occurrence: None)
  Receive Date: 20120404
  Receipt Date: 20120330
  Transmission Date: 20120825
  Serious: Yes (Death)
  Sender: FDA-Public Use
  Company Number: US-ROXANE LABORATORIES, INC.-2012-RO-00934RO

PATIENT

DRUGS (6)
  1. TRAZODONE METHOCARBAMOL [Suspect]
  2. DIAZEPAM [Suspect]
  3. HYDROXYZINE PAMOATE [Suspect]
  4. ETODOLAC [Suspect]
  5. BUSPIRONE HCL [Suspect]
  6. METHADONE HCL [Suspect]

REACTIONS (1)
  - OVERDOSE [None]
